FAERS Safety Report 26203974 (Version 1)
Quarter: 2025Q4

REPORT INFORMATION
  Report Type: Spontaneous
  Country: EU (occurrence: EU)
  Receive Date: 20251226
  Receipt Date: 20251226
  Transmission Date: 20260118
  Serious: Yes (Other)
  Sender: AMGEN
  Company Number: EU-AMGEN-ITASP2025209737

PATIENT
  Age: 5 Year
  Sex: Female

DRUGS (5)
  1. ECULIZUMAB [Suspect]
     Active Substance: ECULIZUMAB
     Indication: Glomerulonephritis rapidly progressive
     Dosage: UNK
     Route: 065
  2. PREDNISONE [Concomitant]
     Active Substance: PREDNISONE
     Indication: Nephrotic syndrome
     Dosage: 60 MILLIGRAM/SQ. METER, QD
     Route: 065
  3. INSULIN NOS [Concomitant]
     Active Substance: INSULIN NOS
     Indication: Type 1 diabetes mellitus
  4. RAMIPRIL [Concomitant]
     Active Substance: RAMIPRIL
     Indication: Nephrotic syndrome
  5. RITUXIMAB [Concomitant]
     Active Substance: RITUXIMAB
     Indication: Nephrotic syndrome
     Dosage: 375 MILLIGRAM/SQ. METER, Q2WK, (2 DOSES)
     Route: 065

REACTIONS (3)
  - Nephrotic syndrome [Recovered/Resolved]
  - Drug effective for unapproved indication [Unknown]
  - Off label use [Unknown]
